FAERS Safety Report 9136127 (Version 1)
Quarter: 2013Q1

REPORT INFORMATION
  Report Type: Spontaneous
  Country: US (occurrence: US)
  Receive Date: 20130304
  Receipt Date: 20130304
  Transmission Date: 20140127
  Serious: No
  Sender: FDA-Public Use
  Company Number: US-ABBOTT-12P-163-1018928-00

PATIENT
  Age: 57 Year
  Sex: Male
  Weight: 88.53 kg

DRUGS (12)
  1. ANDROGEL [Suspect]
     Indication: BLOOD TESTOSTERONE DECREASED
     Dates: start: 2002
  2. ANDROGEL [Suspect]
     Dosage: 5 PUMPS PER DAY
     Dates: start: 2011, end: 20121203
  3. ANDROGEL [Suspect]
     Dosage: 8 PUMPS PER DAY
     Dates: start: 20121203
  4. METOPROLOL [Concomitant]
     Indication: HYPERTENSION
     Dates: end: 201212
  5. METOPROLOL [Concomitant]
     Dates: start: 20121203
  6. CYMBALTA [Concomitant]
     Indication: NEUROPATHY PERIPHERAL
  7. CELEBREX [Concomitant]
     Indication: ARTHRITIS
  8. THYROXINE [Concomitant]
     Indication: THYROID DISORDER
  9. GABAPENTIN [Concomitant]
     Indication: NEUROPATHY PERIPHERAL
  10. SIMVASTATIN [Concomitant]
     Indication: BLOOD CHOLESTEROL ABNORMAL
  11. ASPIRIN [Concomitant]
     Indication: PRODUCT USED FOR UNKNOWN INDICATION
  12. B COMPLEX [Concomitant]
     Indication: SUPPLEMENTATION THERAPY

REACTIONS (2)
  - Blood pressure increased [Unknown]
  - Blood testosterone decreased [Unknown]
